FAERS Safety Report 19396976 (Version 3)
Quarter: 2021Q3

REPORT INFORMATION
  Report Type: Spontaneous
  Country: US (occurrence: US)
  Receive Date: 20210609
  Receipt Date: 20210804
  Transmission Date: 20211014
  Serious: No
  Sender: FDA-Public Use
  Company Number: US-PFIZER INC-2021530547

PATIENT
  Age: 8 Year
  Sex: Female
  Weight: 29.48 kg

DRUGS (2)
  1. GENOTROPIN [Suspect]
     Active Substance: SOMATROPIN
     Dosage: 1.2 MG, 1X/DAY
     Route: 058
  2. GENOTROPIN [Suspect]
     Active Substance: SOMATROPIN
     Indication: GROWTH HORMONE DEFICIENCY
     Dosage: 1.1 MG

REACTIONS (4)
  - Drug dose omission by device [Unknown]
  - Product prescribing error [Unknown]
  - Wrong technique in device usage process [Unknown]
  - Device breakage [Unknown]
